FAERS Safety Report 23639290 (Version 1)
Quarter: 2024Q1

REPORT INFORMATION
  Report Type: Spontaneous
  Country: US (occurrence: US)
  Receive Date: 20240316
  Receipt Date: 20240316
  Transmission Date: 20240410
  Serious: No
  Sender: FDA-Public Use
  Company Number: US-JNJFOC-20170510188

PATIENT
  Sex: Male

DRUGS (3)
  1. RISPERDAL [Suspect]
     Active Substance: RISPERIDONE
     Indication: Bipolar disorder
     Dosage: 0.25 MG ONE HALF TABLET TWICE A DAY
     Route: 048
     Dates: start: 20121008, end: 20121021
  2. RISPERDAL [Suspect]
     Active Substance: RISPERIDONE
     Dosage: 0.25 MG ONE TABLET TWICE A DAY
     Route: 048
     Dates: start: 20121022
  3. RISPERDAL [Suspect]
     Active Substance: RISPERIDONE
     Dosage: 0.5 MG TABLETS ONE TABLET AT MORNING AND 2 TABLETS AT NOON
     Route: 048
     Dates: start: 20130102, end: 20130108

REACTIONS (1)
  - Drug ineffective [Unknown]
